FAERS Safety Report 5003634-9 (Version None)
Quarter: 2006Q2

REPORT INFORMATION
  Report Type: 
  Country: None (occurrence: None)
  Receive Date: 20060511
  Receipt Date: 20060426
  Transmission Date: 20061013
  Serious: Yes (Life-Threatening)
  Sender: FDA-Public Use
  Company Number: DEU-2006-0002150

PATIENT
  Age: 81 Year
  Sex: Female

DRUGS (9)
  1. OXYCODONE HCL [Suspect]
     Indication: PAIN
     Dosage: 20 MG, BID, ORAL
     Route: 048
     Dates: start: 20060302, end: 20060308
  2. LASIX [Concomitant]
  3. ALLOPURINOL [Concomitant]
  4. CARBIMAZOLE [Concomitant]
  5. NIFEDIPINE [Concomitant]
  6. NOVALGIN [Concomitant]
  7. XIPAMIDE [Concomitant]
  8. INSULIN ACTRAPHANE (INSULIN HUMAN INJECTION, ISOPHANE) [Concomitant]
  9. POTASSIUM CHLORIDE [Concomitant]

REACTIONS (4)
  - CARDIAC FAILURE [None]
  - CONDITION AGGRAVATED [None]
  - DYSPNOEA [None]
  - OEDEMA PERIPHERAL [None]
